FAERS Safety Report 6533090-0 (Version None)
Quarter: 2010Q1

REPORT INFORMATION
  Report Type: 
  Country: None (occurrence: None)
  Receive Date: 20100111
  Receipt Date: 20100104
  Transmission Date: 20100710
  Serious: Yes (Other)
  Sender: FDA-Public Use
  Company Number: US-AMGEN-QUU383653

PATIENT
  Sex: Female

DRUGS (2)
  1. ENBREL [Suspect]
     Indication: RHEUMATOID ARTHRITIS
     Route: 058
     Dates: start: 20060520
  2. METHOTREXATE [Concomitant]
     Route: 048

REACTIONS (7)
  - ABDOMINAL PAIN [None]
  - EYE DISCHARGE [None]
  - HEADACHE [None]
  - INTRA-ABDOMINAL HAEMORRHAGE [None]
  - PERIPHERAL VASCULAR DISORDER [None]
  - RESPIRATORY TRACT INFECTION [None]
  - SKIN ODOUR ABNORMAL [None]
